FAERS Safety Report 8276798-1 (Version None)
Quarter: 2012Q2

REPORT INFORMATION
  Report Type: 
  Country: None (occurrence: None)
  Receive Date: 20120412
  Receipt Date: 20120404
  Transmission Date: 20120825
  Serious: Yes (Other)
  Sender: FDA-Public Use
  Company Number: US-BAYER-2012-033449

PATIENT
  Age: 17 Year
  Sex: Female

DRUGS (1)
  1. YAZ [Suspect]
     Dosage: UNK
     Dates: start: 20080601, end: 20100601

REACTIONS (8)
  - PSYCHOLOGICAL TRAUMA [None]
  - INJURY [None]
  - PAIN [None]
  - POST CHOLECYSTECTOMY SYNDROME [None]
  - GALLBLADDER PAIN [None]
  - ANXIETY [None]
  - GALLBLADDER DISORDER [None]
  - GASTROINTESTINAL DISORDER [None]
